FAERS Safety Report 8327414 (Version 2)
Quarter: 2012Q4

REPORT INFORMATION
  Report Type: Report from Study
  Country: FI (occurrence: FI)
  Receive Date: 20120109
  Receipt Date: 20121126
  Transmission Date: 20130627
  Serious: Yes (Hospitalization, Other)
  Sender: FDA-Public Use
  Company Number: FI-ROCHE-1027252

PATIENT
  Age: 71 Year
  Sex: Female
  Weight: 82 kg

DRUGS (11)
  1. RITUXIMAB [Suspect]
     Indication: RHEUMATOID ARTHRITIS
     Route: 042
     Dates: start: 20091008
  2. RITUXIMAB [Suspect]
     Route: 042
     Dates: start: 20120113
  3. RITUXIMAB [Suspect]
     Route: 042
     Dates: start: 20120127
  4. TRIPTYL [Concomitant]
     Indication: PAIN
  5. LYRICA [Concomitant]
     Indication: PAIN
  6. DURAGESIC PATCH [Concomitant]
     Indication: PAIN
  7. PANADOL [Concomitant]
     Indication: PAIN
  8. PREDNISOLON [Concomitant]
     Indication: RHEUMATOID ARTHRITIS
     Route: 065
  9. METHOTREXATE [Concomitant]
     Indication: RHEUMATOID ARTHRITIS
     Route: 058
  10. SALAZOPYRIN EN [Concomitant]
     Indication: RHEUMATOID ARTHRITIS
  11. OXIKLORIN [Concomitant]
     Indication: RHEUMATOID ARTHRITIS

REACTIONS (3)
  - Rheumatoid arthritis [Unknown]
  - Wound [Recovered/Resolved]
  - Fallopian tube cancer [Unknown]
